FAERS Safety Report 15873407 (Version 1)
Quarter: 2019Q1

REPORT INFORMATION
  Report Type: Spontaneous
  Country: US (occurrence: US)
  Receive Date: 20190126
  Receipt Date: 20190126
  Transmission Date: 20190417
  Serious: No
  Sender: FDA-Public Use
  Company Number: US-ACORDA-ACO_150459_2018

PATIENT
  Sex: Female

DRUGS (3)
  1. ALL OTHER THERAPEUTIC PRODUCTS (INJECTION MEDICATIONS) [Suspect]
     Active Substance: UNSPECIFIED INGREDIENT
     Indication: PRODUCT USED FOR UNKNOWN INDICATION
     Dosage: UNK
     Route: 065
  2. AMPYRA [Suspect]
     Active Substance: DALFAMPRIDINE
     Indication: PRODUCT USED FOR UNKNOWN INDICATION
     Dosage: UNK
     Route: 065
  3. TECFIDERA [Interacting]
     Active Substance: DIMETHYL FUMARATE
     Indication: MULTIPLE SCLEROSIS
     Dosage: 240 MG, UNK
     Route: 048
     Dates: start: 20160307, end: 20171130

REACTIONS (9)
  - Condition aggravated [Unknown]
  - Mental impairment [Unknown]
  - Gait disturbance [Unknown]
  - Fatigue [Unknown]
  - Loss of personal independence in daily activities [Unknown]
  - Pain [Unknown]
  - Treatment noncompliance [None]
  - Thinking abnormal [Unknown]
  - Drug interaction [Unknown]
